FAERS Safety Report 9657902 (Version 1)
Quarter: 2013Q4

REPORT INFORMATION
  Report Type: Spontaneous
  Country: US (occurrence: None)
  Receive Date: 20131029
  Receipt Date: 20131029
  Transmission Date: 20140711
  Serious: Yes (Hospitalization)
  Sender: FDA-Public Use
  Company Number: AUR-APL-2013-08968

PATIENT
  Age: 92 Year
  Sex: Female
  Weight: 77.1 kg

DRUGS (1)
  1. MELOXICAM (MELOXICAM) [Suspect]
     Indication: PAIN IN EXTREMITY

REACTIONS (2)
  - Fatigue [None]
  - Asthenia [None]
